APPROVED DRUG PRODUCT: POTASSIUM CHLORIDE
Active Ingredient: POTASSIUM CHLORIDE
Strength: 20MEQ/15ML
Dosage Form/Route: SOLUTION;ORAL
Application: A214076 | Product #001
Applicant: TRIS PHARMA INC
Approved: Jan 26, 2022 | RLD: No | RS: No | Type: DISCN